FAERS Safety Report 5560468-4 (Version None)
Quarter: 2007Q4

REPORT INFORMATION
  Report Type: 
  Country: None (occurrence: None)
  Receive Date: 20071215
  Receipt Date: 20071111
  Transmission Date: 20080405
  Serious: No
  Sender: FDA-Public Use
  Company Number: US-ABBOTT-07P-163-0424282-00

PATIENT
  Sex: Female
  Weight: 57.204 kg

DRUGS (2)
  1. HUMIRA [Suspect]
     Indication: CROHN'S DISEASE
     Route: 058
     Dates: start: 20071101
  2. ENDOCORT [Concomitant]
     Indication: ARTHRALGIA
     Route: 048

REACTIONS (5)
  - DIZZINESS [None]
  - HYPOTENSION [None]
  - MIDDLE EAR EFFUSION [None]
  - SENSATION OF PRESSURE [None]
  - SINUSITIS [None]
